FAERS Safety Report 8097258-7 (Version None)
Quarter: 2012Q1

REPORT INFORMATION
  Report Type: 
  Country: None (occurrence: None)
  Receive Date: 20120128
  Receipt Date: 20110721
  Transmission Date: 20120608
  Serious: No
  Sender: FDA-Public Use
  Company Number: US-ABBOTT-11P-163-0730531-00

PATIENT
  Sex: Female
  Weight: 69.916 kg

DRUGS (3)
  1. HUMIRA [Suspect]
     Indication: CROHN'S DISEASE
     Dosage: (40 MG, LOADING DOSE)
     Route: 058
     Dates: start: 20110523, end: 20110523
  2. HUMIRA [Suspect]
  3. HUMIRA [Suspect]
     Dosage: (80 MG, SECOND LOADING DOSE)
     Route: 058
     Dates: start: 20110606, end: 20110606

REACTIONS (4)
  - INJECTION SITE NODULE [None]
  - INJECTION SITE HAEMATOMA [None]
  - INJECTION SITE PAIN [None]
  - APPLICATION SITE PAIN [None]
